FAERS Safety Report 23250330 (Version 1)
Quarter: 2023Q4

REPORT INFORMATION
  Report Type: Spontaneous
  Country: CA (occurrence: None)
  Receive Date: 20231201
  Receipt Date: 20231201
  Transmission Date: 20240110
  Serious: Yes (Other)
  Sender: FDA-Public Use
  Company Number: CA-ROCHE-3462575

PATIENT

DRUGS (3)
  1. BEVACIZUMAB [Suspect]
     Active Substance: BEVACIZUMAB
     Indication: Respiratory papilloma
     Route: 042
  2. BEVACIZUMAB [Suspect]
     Active Substance: BEVACIZUMAB
     Route: 042
  3. HPV VACCINE VLP RL1 9V (YEAST) [Concomitant]
     Route: 065

REACTIONS (6)
  - Drug effective for unapproved indication [Recovered/Resolved]
  - Hypertension [Recovered/Resolved]
  - Off label use [Unknown]
  - Proteinuria [Recovered/Resolved]
  - Renal-limited thrombotic microangiopathy [Recovered/Resolved]
  - Respiratory papilloma [Recovered/Resolved]
